FAERS Safety Report 4331135-X (Version None)
Quarter: 2004Q1

REPORT INFORMATION
  Report Type: 
  Country: None (occurrence: None)
  Receive Date: 20040331
  Receipt Date: 20040317
  Transmission Date: 20041129
  Serious: Yes (Hospitalization, Other)
  Sender: FDA-Public Use
  Company Number: 2003003463

PATIENT
  Age: 54 Year
  Sex: Male

DRUGS (22)
  1. LOPID [Suspect]
     Indication: HYPERLIPIDAEMIA
     Dosage: 1200 MG (BID), ORAL
     Route: 048
     Dates: end: 20010328
  2. CERIVASTATIN (CERIVASTATIN) [Suspect]
     Indication: HYPERLIPIDAEMIA
     Dosage: 0.8 MG (DAILY)
     Dates: start: 20010303, end: 20010328
  3. PRAVASTATIN SODIUM [Suspect]
     Indication: HYPERLIPIDAEMIA
  4. ASPIRIN [Concomitant]
  5. ATENOLOL [Concomitant]
  6. ROSIGLITAZONE MALEATE [Concomitant]
  7. QUINAPRIL HYDROCHLORIDE [Concomitant]
  8. METFORMIN HYDROCHLORIDE [Concomitant]
  9. GLIPIZIDE [Concomitant]
  10. INSULIN [Concomitant]
  11. SIMVASTATIN [Concomitant]
  12. VERAPAMIL HYDROCHLORIDE [Concomitant]
  13. GLYCERYL TRINITRATE [Concomitant]
  14. GEMFIBROZIL [Concomitant]
  15. INSULIN GLARGINE [Concomitant]
  16. FENOFIBRATE [Concomitant]
  17. ISOPHANE INSULIN [Concomitant]
  18. CEPHALEXIN [Concomitant]
  19. IBUPROFEN [Concomitant]
  20. HYDROCODONE [Concomitant]
  21. ACETAMINOPHEN [Concomitant]
  22. ERYTHROMYCIN [Concomitant]

REACTIONS (66)
  - ANGINA UNSTABLE [None]
  - ANXIETY [None]
  - BACK PAIN [None]
  - BENIGN PROSTATIC HYPERPLASIA [None]
  - BLOOD ALBUMIN DECREASED [None]
  - BLOOD POTASSIUM DECREASED [None]
  - BLOOD POTASSIUM INCREASED [None]
  - BLOOD PRESSURE DECREASED [None]
  - BLOOD PRESSURE INCREASED [None]
  - BLOOD PRESSURE SYSTOLIC INCREASED [None]
  - BLOOD URIC ACID INCREASED [None]
  - BUNDLE BRANCH BLOCK RIGHT [None]
  - CARDIOACTIVE DRUG LEVEL BELOW THERAPEUTIC [None]
  - CATHETER RELATED COMPLICATION [None]
  - CEREBRAL ATROPHY [None]
  - CERVICOBRACHIAL SYNDROME [None]
  - CHEST PAIN [None]
  - CHROMATURIA [None]
  - CONTUSION [None]
  - COUGH [None]
  - CYST [None]
  - CYSTITIS [None]
  - DEPRESSION [None]
  - DIABETES MELLITUS INADEQUATE CONTROL [None]
  - DIZZINESS [None]
  - ECCHYMOSIS [None]
  - EOSINOPHIL COUNT INCREASED [None]
  - ERECTILE DYSFUNCTION [None]
  - GOITRE [None]
  - HAEMATOCRIT DECREASED [None]
  - HAEMATOMA [None]
  - HAEMOGLOBIN DECREASED [None]
  - HEADACHE [None]
  - HEART RATE INCREASED [None]
  - HEART RATE IRREGULAR [None]
  - HYPERHIDROSIS [None]
  - HYPOACUSIS [None]
  - INCISION SITE HAEMORRHAGE [None]
  - JOINT SWELLING [None]
  - METABOLIC DISORDER [None]
  - METABOLIC SYNDROME [None]
  - MITRAL VALVE INCOMPETENCE [None]
  - MONOCYTE COUNT INCREASED [None]
  - MOVEMENT DISORDER [None]
  - MYALGIA [None]
  - MYOCARDIAL INFARCTION [None]
  - MYOCARDIAL ISCHAEMIA [None]
  - MYOSITIS [None]
  - NAUSEA [None]
  - PALPITATIONS [None]
  - PCO2 DECREASED [None]
  - POST PROCEDURAL COMPLICATION [None]
  - PROTEIN TOTAL DECREASED [None]
  - RASH [None]
  - RED BLOOD CELL COUNT DECREASED [None]
  - RED BLOOD CELL SEDIMENTATION RATE INCREASED [None]
  - SCIATICA [None]
  - SCRATCH [None]
  - SKIN INFECTION [None]
  - SUPRAVENTRICULAR TACHYCARDIA [None]
  - URETHRAL DISORDER [None]
  - URETHRAL STRICTURE [None]
  - URINARY RETENTION [None]
  - URINARY TRACT INFECTION [None]
  - VOMITING [None]
  - WHEEZING [None]
